FAERS Safety Report 18707995 (Version 2)
Quarter: 2021Q4

REPORT INFORMATION
  Report Type: Spontaneous
  Country: US (occurrence: US)
  Receive Date: 20210106
  Receipt Date: 20211228
  Transmission Date: 20220303
  Serious: Yes (Hospitalization, Other)
  Sender: FDA-Public Use
  Company Number: US-PFIZER INC-2021003561

PATIENT
  Age: 53 Year
  Sex: Female

DRUGS (2)
  1. XELJANZ [Suspect]
     Active Substance: TOFACITINIB CITRATE
     Indication: Rheumatoid arthritis
     Dosage: 5 MG, 2X/DAY
     Route: 048
  2. XELJANZ [Suspect]
     Active Substance: TOFACITINIB CITRATE
     Dosage: 5 MG, 2X/DAY
     Route: 048
     Dates: start: 202110

REACTIONS (8)
  - Rectal cancer [Unknown]
  - Post procedural complication [Unknown]
  - Abdominal pain [Unknown]
  - Fatigue [Unknown]
  - Abnormal faeces [Unknown]
  - Pain [Unknown]
  - Loss of personal independence in daily activities [Unknown]
  - Intentional product use issue [Unknown]

NARRATIVE: CASE EVENT DATE: 20201231
